FAERS Safety Report 20794698 (Version 1)
Quarter: 2022Q2

REPORT INFORMATION
  Report Type: Spontaneous
  Country: US (occurrence: US)
  Receive Date: 20220506
  Receipt Date: 20220506
  Transmission Date: 20220721
  Serious: Yes (Hospitalization, Other)
  Sender: FDA-Public Use
  Company Number: US-Indicus Pharma-000835

PATIENT
  Age: 78 Year
  Sex: Female

DRUGS (10)
  1. METFORMIN [Suspect]
     Active Substance: METFORMIN HYDROCHLORIDE
     Indication: Type 2 diabetes mellitus
     Dosage: 1000 MG TWICE DAILY
     Dates: start: 2005
  2. ASPIRIN [Concomitant]
     Active Substance: ASPIRIN
     Dosage: 81 MG DAILY
  3. ATORVASTATIN [Concomitant]
     Active Substance: ATORVASTATIN
     Dosage: 40 MG DAILY
  4. FAMOTIDINE [Concomitant]
     Active Substance: FAMOTIDINE
     Indication: Dyspepsia
     Dosage: 20 MG TWICE DAILY AS NEEDED
  5. INSULIN GLARGINE [Concomitant]
     Active Substance: INSULIN GLARGINE
     Dosage: 18 UNITS SUBCUTANEOUS AT BEDTIME
     Route: 058
  6. INSULIN ASPART [Concomitant]
     Active Substance: INSULIN ASPART
     Dosage: 20 UNITS SUBCUTANEOUS 3 TIMES DAILY BEFORE MEALS
     Route: 058
  7. METOPROLOL TARTRATE [Concomitant]
     Active Substance: METOPROLOL TARTRATE
     Dosage: 25 MG TWICE DAILY
  8. LOSARTAN [Concomitant]
     Active Substance: LOSARTAN
     Dosage: 100 MG DAILY
  9. TORSEMIDE [Concomitant]
     Active Substance: TORSEMIDE
     Dosage: 20 MG DAILY
  10. SERTRALINE [Concomitant]
     Active Substance: SERTRALINE HYDROCHLORIDE
     Dosage: 150 MG DAILY

REACTIONS (2)
  - Lactic acidosis [Recovered/Resolved]
  - Blindness transient [Recovered/Resolved]
